FAERS Safety Report 24374008 (Version 1)
Quarter: 2024Q3

REPORT INFORMATION
  Report Type: Spontaneous
  Country: US (occurrence: US)
  Receive Date: 20240927
  Receipt Date: 20240927
  Transmission Date: 20241017
  Serious: No
  Sender: VIVUS
  Company Number: US-VIVUS LLC-2024V1000638

PATIENT
  Age: 63 Year
  Sex: Female
  Weight: 63.106 kg

DRUGS (2)
  1. QSYMIA [Suspect]
     Active Substance: PHENTERMINE HYDROCHLORIDE\TOPIRAMATE
     Indication: Weight decreased
     Route: 048
  2. LOSARTAN [Concomitant]
     Active Substance: LOSARTAN\LOSARTAN POTASSIUM
     Indication: Hypertension
     Route: 065

REACTIONS (6)
  - Muscle twitching [Unknown]
  - Dehydration [Unknown]
  - Hypoaesthesia [Unknown]
  - Paraesthesia [Unknown]
  - Thirst [Unknown]
  - Dry mouth [Unknown]
